FAERS Safety Report 8324904-2 (Version None)
Quarter: 2012Q2

REPORT INFORMATION
  Report Type: 
  Country: None (occurrence: None)
  Receive Date: 20120501
  Receipt Date: 20120424
  Transmission Date: 20120825
  Serious: Yes (Other)
  Sender: FDA-Public Use
  Company Number: BR-PFIZER INC-2012102145

PATIENT
  Age: 74 Year
  Sex: Female
  Weight: 60 kg

DRUGS (7)
  1. ALENDRONATE SODIUM [Concomitant]
  2. GINKGO BILOBA [Concomitant]
  3. XALATAN [Suspect]
     Indication: PAIN
     Dosage: UNK
     Route: 047
  4. OXIGEN [Concomitant]
  5. XALATAN [Suspect]
     Indication: INTRAOCULAR PRESSURE INCREASED
  6. METHOTREXATE [Concomitant]
  7. LIPITOR [Concomitant]

REACTIONS (3)
  - INTRAOCULAR PRESSURE INCREASED [None]
  - GLAUCOMA [None]
  - BLINDNESS UNILATERAL [None]
